FAERS Safety Report 5910972-1 (Version None)
Quarter: 2008Q4

REPORT INFORMATION
  Report Type: 
  Country: None (occurrence: None)
  Receive Date: 20081003
  Receipt Date: 20081003
  Transmission Date: 20090506
  Serious: No
  Sender: FDA-Public Use
  Company Number: None

PATIENT
  Age: 76 Year
  Sex: Male
  Weight: 70.3075 kg

DRUGS (1)
  1. BONIVA [Suspect]
     Indication: OSTEOPOROSIS
     Dosage: ONCE A DAY
     Dates: start: 20080901, end: 20080930

REACTIONS (6)
  - ANOREXIA [None]
  - DIZZINESS [None]
  - FALL [None]
  - FEELING DRUNK [None]
  - LACERATION [None]
  - NAUSEA [None]
